FAERS Safety Report 9455793 (Version 2)
Quarter: 2013Q3

REPORT INFORMATION
  Report Type: Spontaneous
  Country: JP (occurrence: JP)
  Receive Date: 20130813
  Receipt Date: 20130821
  Transmission Date: 20140515
  Serious: Yes (Death, Hospitalization)
  Sender: FDA-Public Use
  Company Number: JP-SANOFI-AVENTIS-2013SA080376

PATIENT
  Age: 79 Year
  Sex: Male
  Weight: 46 kg

DRUGS (10)
  1. ONETAXOTERE [Suspect]
     Indication: PROSTATE CANCER
     Route: 042
     Dates: start: 20130416, end: 20130705
  2. DECADRON [Concomitant]
     Dosage: FREQUENCY: AFTER EVERY ADMINISTRATION OF ONETAXOTERE
     Dates: start: 20130416, end: 20130705
  3. PLETAAL [Concomitant]
     Indication: CEREBRAL INFARCTION
     Route: 048
     Dates: start: 2003, end: 20130804
  4. REBAMIPIDE [Concomitant]
     Indication: GASTRITIS
     Route: 048
     Dates: end: 20130804
  5. BAYASPIRIN [Concomitant]
     Indication: CEREBRAL INFARCTION
     Route: 048
     Dates: end: 20130804
  6. PLAVIX [Concomitant]
     Indication: CEREBRAL INFARCTION
     Route: 048
     Dates: start: 2003, end: 20130804
  7. FAMOTIDINE [Concomitant]
     Indication: GASTRITIS
     Dates: end: 20130804
  8. EVIPROSTAT [Concomitant]
     Indication: BENIGN PROSTATIC HYPERPLASIA
     Route: 048
     Dates: end: 20130804
  9. GASTER D [Concomitant]
     Indication: GASTRITIS
     Route: 048
     Dates: end: 20130804
  10. GRANISETRON [Concomitant]
     Dosage: FREQUENCY: AFTER EVERY ADMINISTRATION OF ONETAXOTERE
     Dates: start: 20130416, end: 20130705

REACTIONS (5)
  - Interstitial lung disease [Fatal]
  - Decreased appetite [Fatal]
  - Malaise [Fatal]
  - Dyspnoea [Fatal]
  - Pneumonia bacterial [Fatal]
